FAERS Safety Report 5702990-3 (Version None)
Quarter: 2008Q2

REPORT INFORMATION
  Report Type: 
  Country: None (occurrence: None)
  Receive Date: 20080408
  Receipt Date: 20080326
  Transmission Date: 20081010
  Serious: Yes (Hospitalization)
  Sender: FDA-Public Use
  Company Number: 232780J08USA

PATIENT
  Age: 60 Year
  Sex: Female
  Weight: 55.3388 kg

DRUGS (2)
  1. REBIF [Suspect]
     Indication: MULTIPLE SCLEROSIS
     Dosage: 44 MCG, 3 IN 1 WEEKS, SUBCUTANEOUS
     Route: 058
     Dates: start: 20050125, end: 20071110
  2. LEXAPRO [Suspect]

REACTIONS (6)
  - CONDITION AGGRAVATED [None]
  - CONFUSIONAL STATE [None]
  - DIZZINESS [None]
  - FATIGUE [None]
  - HYPERTENSION [None]
  - MULTIPLE SCLEROSIS [None]
